FAERS Safety Report 9720064 (Version 3)
Quarter: 2014Q3

REPORT INFORMATION
  Report Type: Report from Study
  Country: US (occurrence: US)
  Receive Date: 20131128
  Receipt Date: 20140707
  Transmission Date: 20150326
  Serious: Yes (Other)
  Sender: FDA-Public Use
  Company Number: US-ROCHE-1307429

PATIENT
  Sex: Male
  Weight: 108.96 kg

DRUGS (11)
  1. ASPIRIN. [Concomitant]
     Active Substance: ASPIRIN
     Route: 048
  2. TYLENOL [Concomitant]
     Active Substance: ACETAMINOPHEN
     Indication: ARTHRITIS
     Route: 048
  3. HYDROCODONE/ACETAMINOPHEN [Concomitant]
     Active Substance: ACETAMINOPHEN\HYDROCODONE
     Dosage: 10/325MG AS NEEDED
     Route: 065
  4. FOLIC ACID. [Concomitant]
     Active Substance: FOLIC ACID
     Route: 065
  5. ACTEMRA [Suspect]
     Active Substance: TOCILIZUMAB
     Route: 042
     Dates: start: 20131204
  6. METHOTREXATE [Concomitant]
     Active Substance: METHOTREXATE
     Route: 048
  7. BENADRYL [Concomitant]
     Active Substance: DIPHENHYDRAMINE HYDROCHLORIDE
     Route: 048
  8. ACTEMRA [Suspect]
     Active Substance: TOCILIZUMAB
     Indication: RHEUMATOID ARTHRITIS
     Route: 042
     Dates: start: 20131106
  9. TYLENOL [Concomitant]
     Active Substance: ACETAMINOPHEN
     Indication: PREMEDICATION
  10. PREDNISONE. [Concomitant]
     Active Substance: PREDNISONE
     Route: 048
  11. GLUCOSAMINE/CHONDROITIN [Concomitant]
     Route: 065

REACTIONS (19)
  - Muscular weakness [Unknown]
  - Pain in extremity [Unknown]
  - Very low density lipoprotein increased [Unknown]
  - Cough [Unknown]
  - Paraesthesia [Unknown]
  - Joint swelling [Unknown]
  - Musculoskeletal stiffness [Unknown]
  - Pain [Unknown]
  - Muscle spasms [Unknown]
  - Peripheral swelling [Unknown]
  - Back pain [Unknown]
  - Tenderness [Unknown]
  - Arthralgia [Unknown]
  - Hypoaesthesia [Unknown]
  - Insomnia [Unknown]
  - Myalgia [Unknown]
  - Blood triglycerides increased [Unknown]
  - Neck pain [Unknown]
  - Musculoskeletal pain [Unknown]
